FAERS Safety Report 22877458 (Version 2)
Quarter: 2023Q4

REPORT INFORMATION
  Report Type: Spontaneous
  Country: AU (occurrence: AU)
  Receive Date: 20230829
  Receipt Date: 20231018
  Transmission Date: 20240110
  Serious: Yes (Other)
  Sender: FDA-Public Use
  Company Number: AU-BAYER-2023A119409

PATIENT
  Sex: Male

DRUGS (1)
  1. EYLEA [Suspect]
     Active Substance: AFLIBERCEPT
     Indication: Product used for unknown indication
     Dosage: UNK UNK, ONCE, SOLUTION FOR INJECTION IN PRE-FILLED SYRINGE, STRENGTH- 40MG/ML
     Route: 031
     Dates: start: 20230802, end: 20230802

REACTIONS (3)
  - Blindness [Unknown]
  - Endophthalmitis [Unknown]
  - Vitreous floaters [Unknown]

NARRATIVE: CASE EVENT DATE: 20230804
